FAERS Safety Report 5773922-7 (Version None)
Quarter: 2008Q2

REPORT INFORMATION
  Report Type: 
  Country: None (occurrence: None)
  Receive Date: 20080616
  Receipt Date: 20080609
  Transmission Date: 20081010
  Serious: Yes (Hospitalization)
  Sender: FDA-Public Use
  Company Number: B0524510A

PATIENT
  Age: 49 Year
  Sex: Female
  Weight: 52.1 kg

DRUGS (2)
  1. LAPATINIB [Suspect]
     Dosage: 1250MG PER DAY
     Route: 048
     Dates: start: 20080520
  2. CAPECITABINE [Suspect]
     Dosage: 1000MGM2 TWICE PER DAY
     Route: 048
     Dates: start: 20080520, end: 20080603

REACTIONS (3)
  - BODY TEMPERATURE INCREASED [None]
  - INFECTION [None]
  - WOUND SECRETION [None]
